FAERS Safety Report 6849853-8 (Version None)
Quarter: 2010Q3

REPORT INFORMATION
  Report Type: 
  Country: None (occurrence: None)
  Receive Date: 20100716
  Receipt Date: 20071007
  Transmission Date: 20110219
  Serious: No
  Sender: FDA-Public Use
  Company Number: US-PFIZER INC-2007085756

PATIENT
  Sex: Female
  Weight: 63.6 kg

DRUGS (12)
  1. CHANTIX [Suspect]
     Indication: SMOKING CESSATION THERAPY
     Dates: start: 20071006
  2. VITACAL [Concomitant]
  3. HYDROCODONE [Concomitant]
  4. CLONAZEPAM [Concomitant]
  5. NEXIUM [Concomitant]
  6. ALBUTEROL [Concomitant]
  7. FLEXERIL [Concomitant]
  8. FOLIC ACID [Concomitant]
  9. DILTIAZEM HYDROCHLORIDE [Concomitant]
  10. SIMVASTATIN [Concomitant]
  11. ZONISAMIDE [Concomitant]
  12. ACETYLSALICYLIC ACID [Concomitant]

REACTIONS (3)
  - FATIGUE [None]
  - HYPERHIDROSIS [None]
  - INSOMNIA [None]
